FAERS Safety Report 6537452-7 (Version None)
Quarter: 2010Q1

REPORT INFORMATION
  Report Type: 
  Country: None (occurrence: None)
  Receive Date: 20100114
  Receipt Date: 20100106
  Transmission Date: 20100710
  Serious: Yes (Hospitalization)
  Sender: FDA-Public Use
  Company Number: PHHO2008JP05335

PATIENT
  Sex: Male
  Weight: 56 kg

DRUGS (20)
  1. CERTICAN [Suspect]
     Indication: RENAL TRANSPLANT
     Dosage: 1.5 MG DAILY
     Route: 048
     Dates: start: 20080306
  2. NEORAL [Suspect]
     Indication: RENAL TRANSPLANT
     Dosage: UNK
     Route: 048
     Dates: start: 20080306
  3. NEORAL [Suspect]
     Route: 048
     Dates: start: 20080329
  4. NEORAL [Suspect]
     Dosage: 160 MG, DAILY
     Route: 048
     Dates: start: 20080502
  5. NEORAL [Suspect]
     Dosage: 80 MG, QD
     Dates: start: 20090128
  6. SIMULECT [Suspect]
     Route: 042
     Dates: start: 20080301
  7. LOCHOL [Suspect]
     Indication: HYPERLIPIDAEMIA
     Dosage: UNK
     Dates: start: 20080421
  8. PREDONINE [Suspect]
     Indication: RENAL TRANSPLANT
     Dosage: 10 MG, UNK
     Dates: start: 20080401, end: 20080405
  9. PREDONINE [Suspect]
     Dosage: 7.5 MG, UNK
     Dates: start: 20080415
  10. PREDONINE [Suspect]
     Dosage: 7.5 MG, UNK
     Dates: start: 20090605
  11. PREDONINE [Suspect]
     Dosage: UNK
     Dates: start: 20080829
  12. NEGMIN GARGLE [Suspect]
     Indication: INFECTION
     Dosage: UNK
     Dates: start: 20080306
  13. KETOPROFEN [Suspect]
     Indication: RESTLESS LEGS SYNDROME
     Dosage: UNK
     Dates: start: 20080307
  14. URSO 250 [Suspect]
     Dosage: UNK
     Dates: start: 20080704
  15. NORVASC [Suspect]
     Indication: HYPERTENSION
     Dosage: UNK
     Dates: start: 20080521
  16. STEROIDS NOS [Suspect]
     Indication: RENAL TRANSPLANT
  17. RABEPRAZOLE SODIUM [Concomitant]
  18. MUCOSTA [Concomitant]
  19. MYSLEE [Concomitant]
     Indication: INSOMNIA
  20. PURSENNID [Concomitant]
     Indication: CONSTIPATION
     Route: 048

REACTIONS (12)
  - ALANINE AMINOTRANSFERASE INCREASED [None]
  - BLOOD BETA-D-GLUCAN INCREASED [None]
  - BLOOD CREATININE INCREASED [None]
  - CYTOMEGALOVIRUS VIRAEMIA [None]
  - FATIGUE [None]
  - FOCAL SEGMENTAL GLOMERULOSCLEROSIS [None]
  - HEADACHE [None]
  - HEPATIC FUNCTION ABNORMAL [None]
  - MUSCULOSKELETAL STIFFNESS [None]
  - PNEUMOCYSTIS JIROVECI PNEUMONIA [None]
  - PYREXIA [None]
  - TRACHEOBRONCHITIS [None]
